FAERS Safety Report 6232465-7 (Version None)
Quarter: 2009Q2

REPORT INFORMATION
  Report Type: 
  Country: None (occurrence: None)
  Receive Date: 20090612
  Receipt Date: 20090601
  Transmission Date: 20091009
  Serious: Yes (Hospitalization)
  Sender: FDA-Public Use
  Company Number: 52846

PATIENT
  Age: 86 Year
  Sex: Female
  Weight: 59.8748 kg

DRUGS (4)
  1. PHISODERM ANTI-BLEMISH BODY WASH, 2% SALICYLIC ACID [Suspect]
     Dosage: TOPICAL
     Route: 061
     Dates: start: 20090521
  2. BLOOD PRESSURE MEDICATION [Concomitant]
  3. TRICOR [Concomitant]
  4. NEXIUM [Concomitant]

REACTIONS (3)
  - PRURITUS [None]
  - RASH [None]
  - REACTION TO DRUG EXCIPIENTS [None]
